FAERS Safety Report 12140949 (Version 7)
Quarter: 2017Q2

REPORT INFORMATION
  Report Type: Spontaneous
  Country: JP (occurrence: JP)
  Receive Date: 20160303
  Receipt Date: 20170530
  Transmission Date: 20170829
  Serious: Yes (Death, Life-Threatening, Other)
  Sender: FDA-Public Use
  Company Number: JP-ACTELION-A-CH2016-132383

PATIENT
  Age: 60 Year
  Sex: Female

DRUGS (24)
  1. TREPROST [Concomitant]
     Active Substance: TREPROSTINIL
  2. SLOW-K [Concomitant]
     Active Substance: POTASSIUM CHLORIDE
  3. REBAMIPIDE [Concomitant]
     Active Substance: REBAMIPIDE
  4. BERASUS [Concomitant]
     Active Substance: BERAPROST SODIUM
     Indication: PRODUCT USED FOR UNKNOWN INDICATION
  5. SAMSCA [Concomitant]
     Active Substance: TOLVAPTAN
  6. ALDACTONE A [Concomitant]
     Active Substance: SPIRONOLACTONE
  7. SENNOSIDE [Concomitant]
     Active Substance: SENNOSIDES
  8. FUROSEMIDE. [Concomitant]
     Active Substance: FUROSEMIDE
  9. BARACLUDE [Concomitant]
     Active Substance: ENTECAVIR
  10. OPSUMIT [Suspect]
     Active Substance: MACITENTAN
     Indication: PORTOPULMONARY HYPERTENSION
     Dosage: 10 MG, QD
     Route: 048
     Dates: start: 20150903
  11. REVATIO [Concomitant]
     Active Substance: SILDENAFIL CITRATE
  12. WARFARIN [Concomitant]
     Active Substance: WARFARIN
  13. ALLOPURINOL. [Concomitant]
     Active Substance: ALLOPURINOL
  14. POLAPREZINC [Concomitant]
     Active Substance: POLAPREZINC
  15. LACTOMIN [Concomitant]
     Active Substance: LACTOBACILLUS ACIDOPHILUS
  16. LUPRAC [Concomitant]
     Active Substance: TORSEMIDE
  17. NEXIUM [Concomitant]
     Active Substance: ESOMEPRAZOLE MAGNESIUM
  18. OXYGEN. [Concomitant]
     Active Substance: OXYGEN
  19. LOXOPROFEN SODIUM [Concomitant]
     Active Substance: LOXOPROFEN SODIUM
  20. ACETAMINOPHEN W/CODEINE PHOSPHATE [Concomitant]
     Active Substance: ACETAMINOPHEN\CODEINE PHOSPHATE
  21. OPSUMIT [Suspect]
     Active Substance: MACITENTAN
     Dosage: 5 MG, QD
     Route: 048
     Dates: start: 20150616
  22. MAGLAX [Concomitant]
     Active Substance: MAGNESIUM OXIDE
  23. DAIPHEN [Concomitant]
     Active Substance: SULFAMETHOXAZOLE\TRIMETHOPRIM
  24. LUBIPROSTONE [Concomitant]
     Active Substance: LUBIPROSTONE

REACTIONS (12)
  - Hepatic cirrhosis [Not Recovered/Not Resolved]
  - Gamma-glutamyltransferase increased [Not Recovered/Not Resolved]
  - Haemoglobin decreased [Fatal]
  - Lymphoma [Fatal]
  - Blood alkaline phosphatase increased [Not Recovered/Not Resolved]
  - Concomitant disease aggravated [Fatal]
  - Platelet count decreased [Fatal]
  - Platelet transfusion [Unknown]
  - Haematocrit decreased [Fatal]
  - Red blood cell count decreased [Fatal]
  - White blood cell count decreased [Fatal]
  - Concomitant disease progression [Not Recovered/Not Resolved]

NARRATIVE: CASE EVENT DATE: 2015
